FAERS Safety Report 13430205 (Version 2)
Quarter: 2017Q4

REPORT INFORMATION
  Report Type: Spontaneous
  Country: US (occurrence: US)
  Receive Date: 20170412
  Receipt Date: 20171004
  Transmission Date: 20180320
  Serious: Yes (Hospitalization, Other)
  Sender: FDA-Public Use
  Company Number: US-DRREDDYS-USA/USA/16/0084891

PATIENT
  Age: 58 Year
  Sex: Male

DRUGS (2)
  1. AMOXICILLIN W/CLAVULANATE POTASSIUM 875 MG TABLETS [Suspect]
     Active Substance: AMOXICILLIN\CLAVULANATE POTASSIUM
     Indication: CELLULITIS
     Route: 065
     Dates: start: 20160623, end: 20160705
  2. EPSOM SALT [Concomitant]
     Active Substance: MAGNESIUM SULFATE
     Indication: PRODUCT USED FOR UNKNOWN INDICATION
     Route: 065

REACTIONS (1)
  - Serum sickness-like reaction [Recovering/Resolving]

NARRATIVE: CASE EVENT DATE: 20160710
